FAERS Safety Report 13354265 (Version 1)
Quarter: 2017Q1

REPORT INFORMATION
  Report Type: Spontaneous
  Country: US (occurrence: US)
  Receive Date: 20170318
  Receipt Date: 20170318
  Transmission Date: 20170429
  Serious: Yes (Hospitalization)
  Sender: FDA-Public Use
  Company Number: None

PATIENT
  Age: 52 Year
  Sex: Male
  Weight: 71 kg

DRUGS (4)
  1. DEXAMETHASONE. [Suspect]
     Active Substance: DEXAMETHASONE
     Dates: end: 20170305
  2. VELCADE [Suspect]
     Active Substance: BORTEZOMIB
     Dates: end: 20170304
  3. ASPIRIN. [Concomitant]
     Active Substance: ASPIRIN
  4. LENALIDOMIDE (CC-5013) [Suspect]
     Active Substance: LENALIDOMIDE
     Dates: end: 20170307

REACTIONS (8)
  - Pathological fracture [None]
  - Spinal fracture [None]
  - Thoracic vertebral fracture [None]
  - Fluid overload [None]
  - Pulmonary oedema [None]
  - Cardiac failure congestive [None]
  - Chest pain [None]
  - Renal disorder [None]

NARRATIVE: CASE EVENT DATE: 20170312
